FAERS Safety Report 7447342-3 (Version None)
Quarter: 2011Q2

REPORT INFORMATION
  Report Type: 
  Country: None (occurrence: None)
  Receive Date: 20110429
  Receipt Date: 20110419
  Transmission Date: 20111010
  Serious: Yes (Other)
  Sender: FDA-Public Use
  Company Number: US-JNJFOC-20110409424

PATIENT
  Age: 59 Year
  Sex: Male
  Weight: 72.58 kg

DRUGS (5)
  1. ZYRTEC [Suspect]
     Indication: EYE PRURITUS
     Route: 048
  2. LAMICTAL [Concomitant]
     Indication: DEPRESSION
     Route: 065
  3. ZYRTEC [Suspect]
     Route: 048
  4. WELLBUTRIN [Concomitant]
     Indication: DEPRESSION
     Route: 065
  5. LITHIUM CARBONATE [Concomitant]
     Indication: DEPRESSION
     Route: 065

REACTIONS (2)
  - EXPIRED DRUG ADMINISTERED [None]
  - DEPRESSION [None]
